FAERS Safety Report 20895110 (Version 1)
Quarter: 2022Q2

REPORT INFORMATION
  Report Type: Report from Study
  Country: US (occurrence: US)
  Receive Date: 20220531
  Receipt Date: 20220531
  Transmission Date: 20220721
  Serious: Yes (Other)
  Sender: FDA-Public Use
  Company Number: US-BRISTOL-MYERS SQUIBB COMPANY-2022-049151

PATIENT
  Age: 70 Year
  Sex: Female
  Weight: 72.57 kg

DRUGS (15)
  1. POMALYST [Suspect]
     Active Substance: POMALIDOMIDE
     Indication: Plasma cell myeloma
     Dosage: 21 OUT OF 28 DAYS
     Route: 048
     Dates: start: 202012
  2. XARELTO [Concomitant]
     Active Substance: RIVAROXABAN
  3. AMLODIPINE BESYLATE;BENAZEPRIL [Concomitant]
  4. LUMIGAN [Concomitant]
     Active Substance: BIMATOPROST
  5. DEXAMETHASONE [Concomitant]
     Active Substance: DEXAMETHASONE
  6. XGEVA [Concomitant]
     Active Substance: DENOSUMAB
     Dosage: 120 MG/1.7 VIAL
  7. VITAMIN D3 [Concomitant]
     Active Substance: CHOLECALCIFEROL
  8. PRAVASTATIN SODIUM [Concomitant]
     Active Substance: PRAVASTATIN SODIUM
  9. COLESTIPOL [Concomitant]
     Active Substance: COLESTIPOL
  10. ACYCLOVIR [Concomitant]
     Active Substance: ACYCLOVIR
  11. OMEPRAZOLE [Concomitant]
     Active Substance: OMEPRAZOLE
  12. SODIUM BICARBONATE [Concomitant]
     Active Substance: SODIUM BICARBONATE
  13. TYLENOL [Concomitant]
     Active Substance: ACETAMINOPHEN
  14. CLARITIN-D NOS [Concomitant]
     Active Substance: LORATADINE\PSEUDOEPHEDRINE SULFATE
  15. SYNTHROID [Concomitant]
     Active Substance: LEVOTHYROXINE SODIUM

REACTIONS (1)
  - Discomfort [Unknown]
